FAERS Safety Report 24546353 (Version 1)
Quarter: 2024Q4

REPORT INFORMATION
  Report Type: Spontaneous
  Country: US (occurrence: US)
  Receive Date: 20241024
  Receipt Date: 20241024
  Transmission Date: 20250115
  Serious: No
  Sender: UNITED EXCHANGE
  Company Number: US-United Exchange Corporation-2163338

PATIENT
  Age: 57 Year
  Sex: Female

DRUGS (1)
  1. CVS MEDICATED HEAT 1 CT [Suspect]
     Active Substance: CAPSAICIN
     Indication: Pain
     Dates: start: 20240926, end: 20240926

REACTIONS (1)
  - Pruritus [Recovered/Resolved]

NARRATIVE: CASE EVENT DATE: 20240926
